FAERS Safety Report 19848842 (Version 1)
Quarter: 2021Q3

REPORT INFORMATION
  Report Type: Spontaneous
  Country: ES (occurrence: ES)
  Receive Date: 20210918
  Receipt Date: 20210918
  Transmission Date: 20211014
  Serious: Yes (Death, Hospitalization, Other)
  Sender: FDA-Public Use
  Company Number: ES-ACCORD-238839

PATIENT
  Age: 47 Year
  Sex: Female

DRUGS (5)
  1. POSACONAZOLE [Concomitant]
     Active Substance: POSACONAZOLE
     Indication: ANTIFUNGAL PROPHYLAXIS
  2. VENETOCLAX. [Suspect]
     Active Substance: VENETOCLAX
     Indication: ACUTE MYELOID LEUKAEMIA
     Dosage: UPTITRATED FROM 100 MG DAILY TO A MAXIMUM DOSE OF 400 MG,
  3. DECITABINE. [Suspect]
     Active Substance: DECITABINE
     Indication: ACUTE MYELOID LEUKAEMIA
     Dosage: DAYS 1?5 OF EACH 28?DAY CYCLE, RESTART TREATMENT WITH DEC+VEN
  4. CASPOFUNGIN [Concomitant]
     Active Substance: CASPOFUNGIN
  5. VORICONAZOLE. [Concomitant]
     Active Substance: VORICONAZOLE
     Route: 048

REACTIONS (10)
  - Diarrhoea [Unknown]
  - Pyrexia [Unknown]
  - Myelosuppression [Unknown]
  - Febrile neutropenia [Unknown]
  - Cell-mediated cytotoxicity [Unknown]
  - Systemic candida [Unknown]
  - Escherichia bacteraemia [Unknown]
  - Pneumonia [Fatal]
  - Splenic abscess [Unknown]
  - Septic shock [Fatal]
